FAERS Safety Report 20857720 (Version 1)
Quarter: 2022Q2

REPORT INFORMATION
  Report Type: Spontaneous
  Country: CN (occurrence: None)
  Receive Date: 20220521
  Receipt Date: 20220521
  Transmission Date: 20220721
  Serious: Yes (Other)
  Sender: FDA-Public Use
  Company Number: CN-ROCHE-3098880

PATIENT
  Age: 40 Year
  Sex: Female

DRUGS (15)
  1. AVASTIN [Suspect]
     Active Substance: BEVACIZUMAB
     Indication: Colon cancer
     Route: 065
     Dates: start: 20190113
  2. AVASTIN [Suspect]
     Active Substance: BEVACIZUMAB
     Dosage: TREATMENT WITH FOLFIRI FOR 4 TIMES
     Route: 065
     Dates: start: 20200122
  3. LEUCOVORIN CALCIUM [Concomitant]
     Active Substance: LEUCOVORIN CALCIUM
     Indication: Colon cancer
     Dates: start: 20190113
  4. LEUCOVORIN CALCIUM [Concomitant]
     Active Substance: LEUCOVORIN CALCIUM
     Dates: start: 20190408
  5. LEUCOVORIN CALCIUM [Concomitant]
     Active Substance: LEUCOVORIN CALCIUM
     Dates: start: 20200122, end: 20200408
  6. LEUCOVORIN CALCIUM [Concomitant]
     Active Substance: LEUCOVORIN CALCIUM
     Dates: start: 20200717
  7. FLUOROURACIL [Concomitant]
     Active Substance: FLUOROURACIL
     Indication: Colon cancer
     Dates: start: 20190123
  8. FLUOROURACIL [Concomitant]
     Active Substance: FLUOROURACIL
     Dates: start: 20190408
  9. FLUOROURACIL [Concomitant]
     Active Substance: FLUOROURACIL
     Dates: start: 20200122, end: 20200408
  10. FLUOROURACIL [Concomitant]
     Active Substance: FLUOROURACIL
     Dates: start: 20200717
  11. OXALIPLATIN [Concomitant]
     Active Substance: OXALIPLATIN
     Indication: Colon cancer
     Dates: start: 20190113
  12. OXALIPLATIN [Concomitant]
     Active Substance: OXALIPLATIN
     Dates: start: 20190408
  13. OXALIPLATIN [Concomitant]
     Active Substance: OXALIPLATIN
     Dates: start: 20200717
  14. IRINOTECAN [Concomitant]
     Active Substance: IRINOTECAN
     Indication: Colon cancer
     Dates: start: 20190113
  15. IRINOTECAN [Concomitant]
     Active Substance: IRINOTECAN
     Dates: start: 20200122, end: 20200408

REACTIONS (3)
  - Myelosuppression [Unknown]
  - Foreign body reaction [Unknown]
  - Muscle hypertrophy [Unknown]
